FAERS Safety Report 13855347 (Version 9)
Quarter: 2022Q4

REPORT INFORMATION
  Report Type: Spontaneous
  Country: US (occurrence: US)
  Receive Date: 20170810
  Receipt Date: 20221206
  Transmission Date: 20230113
  Serious: Yes (Hospitalization)
  Sender: FDA-Public Use
  Company Number: US-VIFOR (INTERNATIONAL) INC.-VIT-2017-05244

PATIENT
  Age: 86 Year
  Sex: Female
  Weight: 73.548 kg

DRUGS (14)
  1. VELTASSA [Suspect]
     Active Substance: PATIROMER
     Indication: Hyperkalaemia
     Route: 048
  2. VELTASSA [Suspect]
     Active Substance: PATIROMER
     Indication: Hypervolaemia
     Route: 048
     Dates: start: 20160611
  3. VELTASSA [Suspect]
     Active Substance: PATIROMER
     Indication: Hypertensive nephropathy
  4. OMEPRAZOLE [Concomitant]
     Active Substance: OMEPRAZOLE
  5. ASPIRIN [Concomitant]
     Active Substance: ASPIRIN
  6. ATORVASTATIN CALCIUM [Concomitant]
     Active Substance: ATORVASTATIN CALCIUM
  7. GLIPIZIDE [Concomitant]
     Active Substance: GLIPIZIDE
  8. HYDRALAZINE HCL [Concomitant]
     Active Substance: HYDRALAZINE HYDROCHLORIDE
  9. LYRICA [Concomitant]
     Active Substance: PREGABALIN
  10. METFORMIN HYDROCHLORIDE [Concomitant]
     Active Substance: METFORMIN HYDROCHLORIDE
  11. SYNTHROID [Concomitant]
     Active Substance: LEVOTHYROXINE SODIUM
  12. VITAMIN B12 [Concomitant]
     Active Substance: CYANOCOBALAMIN
  13. VITAMIN D3 [Concomitant]
     Active Substance: CHOLECALCIFEROL
  14. FERREX 150 FORTE [Concomitant]
     Active Substance: CYANOCOBALAMIN\FOLIC ACID\IRON

REACTIONS (9)
  - Cardiac failure congestive [Unknown]
  - Renal failure [Unknown]
  - Blood pressure fluctuation [Unknown]
  - Pain in extremity [Not Recovered/Not Resolved]
  - Peripheral swelling [Not Recovered/Not Resolved]
  - Arthralgia [Not Recovered/Not Resolved]
  - Joint swelling [Not Recovered/Not Resolved]
  - Product dose omission issue [Unknown]
  - Off label use [Unknown]

NARRATIVE: CASE EVENT DATE: 20160611
